FAERS Safety Report 8158149-6 (Version None)
Quarter: 2012Q1

REPORT INFORMATION
  Report Type: 
  Country: None (occurrence: None)
  Receive Date: 20120222
  Receipt Date: 20120216
  Transmission Date: 20120608
  Serious: Yes (Life-Threatening, Hospitalization)
  Sender: FDA-Public Use
  Company Number: GXKR2012DE000744

PATIENT
  Age: 69 Year
  Sex: Female
  Weight: 85 kg

DRUGS (2)
  1. OXALIPLATIN [Suspect]
     Indication: COLON CANCER METASTATIC
     Dosage: 160 MG, UNK
     Route: 042
     Dates: start: 20120201, end: 20120201
  2. FOLFOX-4 [Concomitant]

REACTIONS (3)
  - CIRCULATORY COLLAPSE [None]
  - PULSE ABSENT [None]
  - CARDIAC ARREST [None]
